FAERS Safety Report 8208139-X (Version None)
Quarter: 2012Q1

REPORT INFORMATION
  Report Type: 
  Country: None (occurrence: None)
  Receive Date: 20120314
  Receipt Date: 20120307
  Transmission Date: 20120608
  Serious: Yes (Other)
  Sender: FDA-Public Use
  Company Number: PHHY2011NL83995

PATIENT
  Sex: Female

DRUGS (5)
  1. ZOMETA [Suspect]
     Dosage: 4 MG/ 100 ML ONCE PER 28 DAYS
     Route: 042
     Dates: start: 20120307
  2. ZOMETA [Suspect]
     Indication: BREAST CANCER METASTATIC
     Dosage: 4 MG / 5 ML ONCE PER 28 DAYS
     Route: 042
     Dates: start: 20090629
  3. ZOMETA [Suspect]
     Dosage: 4 MG / 5 ML ONCE PER 28 DAYS
     Route: 042
     Dates: start: 20110921
  4. ZOMETA [Suspect]
     Dosage: 4 MG / 5 ML ONCE PER 28 DAYS
     Route: 042
     Dates: start: 20110825
  5. ZOMETA [Suspect]
     Dosage: 4 MG/ 100 ML ONCE PER 28 DAYS
     Route: 042
     Dates: start: 20120207

REACTIONS (3)
  - CENTRAL NERVOUS SYSTEM LESION [None]
  - HEPATIC LESION [None]
  - METASTASES TO BONE [None]
